FAERS Safety Report 23787377 (Version 1)
Quarter: 2024Q2

REPORT INFORMATION
  Report Type: Spontaneous
  Country: CA (occurrence: CA)
  Receive Date: 20240426
  Receipt Date: 20240426
  Transmission Date: 20240715
  Serious: Yes (Other)
  Sender: FDA-Public Use
  Company Number: None

PATIENT
  Age: 54 Year
  Sex: Female

DRUGS (11)
  1. METHOTREXATE [Suspect]
     Active Substance: METHOTREXATE
     Indication: Product used for unknown indication
     Dosage: 1 EVERY 1 WEEKS
     Route: 065
  2. ACTEMRA [Concomitant]
     Active Substance: TOCILIZUMAB
  3. FOLIC ACID [Concomitant]
     Active Substance: FOLIC ACID
  4. DEXTROSE [Concomitant]
     Active Substance: DEXTROSE\DEXTROSE MONOHYDRATE
  5. HUMALOG [Concomitant]
     Active Substance: INSULIN LISPRO
     Route: 058
  6. INSULIN GLARGINE [Concomitant]
     Active Substance: INSULIN GLARGINE
  7. RAMIPRIL [Concomitant]
     Active Substance: RAMIPRIL
     Dosage: 1 EVERY 1 DAYS
  8. REMICADE [Concomitant]
     Active Substance: INFLIXIMAB
     Indication: Rheumatoid arthritis
     Dosage: POWDER FOR SOLUTION INTRAVENOUS
  9. UPADACITINIB [Concomitant]
     Active Substance: UPADACITINIB
     Dosage: TABLET (EXTENDED- RELEASE)
  10. ROSUVASTATIN CALCIUM [Concomitant]
     Active Substance: ROSUVASTATIN CALCIUM
     Dosage: 1 EVERY 1 DAYS
  11. SYNTHROID [Concomitant]
     Active Substance: LEVOTHYROXINE SODIUM

REACTIONS (4)
  - Bursitis [Unknown]
  - Drug ineffective [Unknown]
  - Morton^s neuralgia [Unknown]
  - Rheumatoid arthritis [Unknown]
